FAERS Safety Report 8549940-2 (Version None)
Quarter: 2012Q3

REPORT INFORMATION
  Report Type: 
  Country: None (occurrence: None)
  Receive Date: 20120730
  Receipt Date: 20120725
  Transmission Date: 20120928
  Serious: No
  Sender: FDA-Public Use
  Company Number: US-TEVA-350660USA

PATIENT
  Sex: Female
  Weight: 81.72 kg

DRUGS (2)
  1. PLAN B ONE-STEP [Suspect]
     Indication: POST COITAL CONTRACEPTION
     Dosage: 1.5 MILLIGRAM;
     Route: 048
     Dates: start: 20120716, end: 20120716
  2. AMOXICILLIN [Concomitant]
     Indication: TOOTH EXTRACTION
     Dates: start: 20120712

REACTIONS (2)
  - VULVOVAGINAL PAIN [None]
  - NAUSEA [None]
